FAERS Safety Report 25037868 (Version 1)
Quarter: 2025Q1

REPORT INFORMATION
  Report Type: Spontaneous
  Country: US (occurrence: US)
  Receive Date: 20250304
  Receipt Date: 20250304
  Transmission Date: 20250409
  Serious: Yes (Other)
  Sender: COOPERSURGICAL
  Company Number: US-COOPERSURGICAL, INC.-2025CPS001322

PATIENT
  Age: 37 Year
  Sex: Female
  Weight: 74.83 kg

DRUGS (2)
  1. PARAGARD T 380A [Suspect]
     Active Substance: COPPER
     Indication: Contraception
     Route: 015
     Dates: start: 20100405
  2. SOOLANTRA [Concomitant]
     Active Substance: IVERMECTIN
     Dates: start: 201912

REACTIONS (12)
  - Reproductive complication associated with device [Unknown]
  - Injury [Unknown]
  - Uterine leiomyoma [Not Recovered/Not Resolved]
  - Device breakage [Not Recovered/Not Resolved]
  - Foreign body in reproductive tract [Not Recovered/Not Resolved]
  - Complication of device removal [Not Recovered/Not Resolved]
  - Uterine scar [Not Recovered/Not Resolved]
  - Pain [Recovered/Resolved]
  - Dyspareunia [Unknown]
  - Dysmenorrhoea [Unknown]
  - Intentional device use issue [Unknown]
  - Off label use [Unknown]

NARRATIVE: CASE EVENT DATE: 20201201
